FAERS Safety Report 11575643 (Version 1)
Quarter: 2015Q3

REPORT INFORMATION
  Report Type: Spontaneous
  Country: US (occurrence: US)
  Receive Date: 20150916
  Receipt Date: 20150916
  Transmission Date: 20151125
  Serious: No
  Sender: FDA-Public Use
  Company Number: US-ELI_LILLY_AND_COMPANY-US200901001565

PATIENT
  Age: 65 Year
  Sex: Female

DRUGS (12)
  1. MIRTAZAPIN [Concomitant]
     Active Substance: MIRTAZAPINE
  2. PROGESTAN [Concomitant]
     Active Substance: PROGESTERONE
  3. FERROUS SULFATE [Concomitant]
     Active Substance: FERROUS SULFATE\FERROUS SULFATE, DRIED
  4. FORTEO [Suspect]
     Active Substance: TERIPARATIDE
     Indication: FALL
     Dosage: 20 UG, UNK
     Dates: start: 20081212
  5. MENOSTAR [Concomitant]
     Active Substance: ESTRADIOL
  6. CRESTOR [Concomitant]
     Active Substance: ROSUVASTATIN CALCIUM
  7. NEXIUM [Concomitant]
     Active Substance: ESOMEPRAZOLE MAGNESIUM
  8. ATIVAN [Concomitant]
     Active Substance: LORAZEPAM
  9. VITAMIN D                          /00107901/ [Concomitant]
     Active Substance: ERGOCALCIFEROL
  10. LACTULOSE. [Concomitant]
     Active Substance: LACTULOSE
  11. ZETIA [Concomitant]
     Active Substance: EZETIMIBE
  12. CENTRUM SILVER                     /02363801/ [Concomitant]
     Active Substance: VITAMINS

REACTIONS (9)
  - Urine output decreased [Recovered/Resolved]
  - Urine abnormality [Not Recovered/Not Resolved]
  - Urine calcium increased [Not Recovered/Not Resolved]
  - Gait disturbance [Not Recovered/Not Resolved]
  - Crystal urine [Not Recovered/Not Resolved]
  - Blood calcium increased [Not Recovered/Not Resolved]
  - Bone pain [Not Recovered/Not Resolved]
  - Asthenia [Not Recovered/Not Resolved]
  - Arthralgia [Not Recovered/Not Resolved]

NARRATIVE: CASE EVENT DATE: 200903
